FAERS Safety Report 5199543-5 (Version None)
Quarter: 2006Q4

REPORT INFORMATION
  Report Type: 
  Country: None (occurrence: None)
  Receive Date: 20061229
  Receipt Date: 20061218
  Transmission Date: 20070319
  Serious: Yes (Disabling, Other)
  Sender: FDA-Public Use
  Company Number: 2006RR-04983

PATIENT
  Age: 59 Year
  Sex: Male
  Weight: 130 kg

DRUGS (6)
  1. SIMVASTATIN [Suspect]
     Dosage: 40 MG, BID, ORAL
     Route: 048
     Dates: end: 20061103
  2. ALLOPURINOL [Concomitant]
  3. CO-CODOMOL [Concomitant]
  4. DICLOFENAC SODIUM [Concomitant]
  5. LANSOPRAZOLE [Concomitant]
  6. MISOPROSTOL [Concomitant]

REACTIONS (3)
  - CONTUSION [None]
  - PAIN IN EXTREMITY [None]
  - RHABDOMYOLYSIS [None]
